FAERS Safety Report 17564869 (Version 1)
Quarter: 2020Q1

REPORT INFORMATION
  Report Type: Spontaneous
  Country: US (occurrence: US)
  Receive Date: 20200313
  Receipt Date: 20200313
  Transmission Date: 20200409
  Serious: No
  Sender: FDA-Public Use
  Company Number: None

PATIENT
  Age: 12 Year
  Sex: Male

DRUGS (1)
  1. SIROLIMUS TAB 1MG [Suspect]
     Active Substance: SIROLIMUS
     Indication: CYTOGENETIC ABNORMALITY
     Route: 048
     Dates: start: 201912

REACTIONS (2)
  - Cytogenetic abnormality [None]
  - Off label use [None]

NARRATIVE: CASE EVENT DATE: 20200313
